FAERS Safety Report 4713758-9 (Version None)
Quarter: 2005Q3

REPORT INFORMATION
  Report Type: 
  Country: None (occurrence: None)
  Receive Date: 20050713
  Receipt Date: 20050629
  Transmission Date: 20060218
  Serious: Yes (Other)
  Sender: FDA-Public Use
  Company Number: USA0506100356

PATIENT
  Age: 75 Year
  Sex: Male

DRUGS (12)
  1. CYMBALTA [Suspect]
     Indication: DEPRESSION
     Dosage: 60 MG DAY
  2. LASIX (FUROSEMIDE  /00032601/) [Concomitant]
  3. INSULIN /00030501/ [Concomitant]
  4. NITROGLYCERIN [Concomitant]
  5. COREG [Concomitant]
  6. DIOVAN [Concomitant]
  7. SYNTHROID [Concomitant]
  8. CLONIDINE [Concomitant]
  9. AMBIEN [Concomitant]
  10. STARLIX [Concomitant]
  11. AVANDIA [Concomitant]
  12. SERAX [Concomitant]

REACTIONS (3)
  - BLOOD CREATININE INCREASED [None]
  - CONDITION AGGRAVATED [None]
  - HYPERTENSION [None]
